FAERS Safety Report 7410309-5 (Version None)
Quarter: 2011Q2

REPORT INFORMATION
  Report Type: 
  Country: None (occurrence: None)
  Receive Date: 20110412
  Receipt Date: 20110330
  Transmission Date: 20111010
  Serious: Yes (Death)
  Sender: FDA-Public Use
  Company Number: US-CELGENEUS-163-21880-11033462

PATIENT
  Sex: Female
  Weight: 48.578 kg

DRUGS (7)
  1. DEXAMETHASONE [Suspect]
     Dosage: 4 MILLIGRAM
     Route: 065
     Dates: start: 20110124, end: 20110101
  2. COUMADIN [Concomitant]
     Route: 065
     Dates: end: 20110211
  3. REVLIMID [Suspect]
     Indication: MULTIPLE MYELOMA
     Dosage: 20 MILLIGRAM
     Route: 048
     Dates: start: 20060117
  4. REVLIMID [Suspect]
     Dosage: 5 MILLIGRAM
     Route: 048
     Dates: end: 20110211
  5. DEXAMETHASONE [Suspect]
     Dosage: 20 MILLIGRAM
     Route: 065
  6. DEXAMETHASONE [Suspect]
     Indication: MULTIPLE MYELOMA
     Route: 065
     Dates: start: 20060117
  7. BIAXIN [Suspect]
     Indication: MULTIPLE MYELOMA
     Route: 065
     Dates: start: 20060117

REACTIONS (1)
  - CEREBRAL HAEMORRHAGE [None]
